FAERS Safety Report 14563587 (Version 1)
Quarter: 2018Q1

REPORT INFORMATION
  Report Type: Spontaneous
  Country: GB (occurrence: FR)
  Receive Date: 20180222
  Receipt Date: 20180222
  Transmission Date: 20180509
  Serious: Yes (Death, Other)
  Sender: FDA-Public Use
  Company Number: FR-FRESENIUS KABI-FK201801907

PATIENT
  Sex: Male
  Weight: 76 kg

DRUGS (8)
  1. ALLOPURINOL. [Concomitant]
     Active Substance: ALLOPURINOL
     Indication: GOUT
     Route: 048
     Dates: start: 201706, end: 20180115
  2. PACLITAXEL (MANUFACTURER UNKNOWN) [Suspect]
     Active Substance: PACLITAXEL
     Indication: OESOPHAGEAL SQUAMOUS CELL CARCINOMA
     Route: 041
     Dates: start: 20171019, end: 20171019
  3. CARBOPLATIN (MANUFACTURER UNKNOWN) [Suspect]
     Active Substance: CARBOPLATIN
     Indication: OESOPHAGEAL SQUAMOUS CELL CARCINOMA
     Route: 041
     Dates: start: 20171019, end: 20171110
  4. ELOXATIN [Suspect]
     Active Substance: OXALIPLATIN
     Indication: OESOPHAGEAL SQUAMOUS CELL CARCINOMA
     Route: 041
     Dates: start: 20170427, end: 20170720
  5. ZOCOR [Suspect]
     Active Substance: SIMVASTATIN
     Indication: DYSLIPIDAEMIA
     Route: 048
  6. ISOPTINE [Concomitant]
     Active Substance: VERAPAMIL HYDROCHLORIDE
     Indication: HYPERTENSION
     Route: 048
     Dates: end: 20180115
  7. ACUILIX [Suspect]
     Active Substance: HYDROCHLOROTHIAZIDE\QUINAPRIL HYDROCHLORIDE
     Indication: HYPERTENSION
     Route: 048
     Dates: end: 20180115
  8. FLUOROURACIL. [Concomitant]
     Active Substance: FLUOROURACIL
     Indication: OESOPHAGEAL SQUAMOUS CELL CARCINOMA
     Route: 041
     Dates: start: 20170427, end: 20170921

REACTIONS (2)
  - Interstitial lung disease [Unknown]
  - Acute respiratory distress syndrome [Fatal]

NARRATIVE: CASE EVENT DATE: 20171129
